FAERS Safety Report 8776414 (Version 2)
Quarter: 2012Q4

REPORT INFORMATION
  Report Type: 
  Country: DE (occurrence: DE)
  Receive Date: 20120910
  Receipt Date: 20120910
  Transmission Date: 20130627
  Serious: Yes (Hospitalization)
  Sender: FDA-Public Use
  Company Number: DE-PFIZER INC-2012217840

PATIENT
  Age: 40 Year
  Weight: 65 kg

DRUGS (4)
  1. PANTOZOL [Suspect]
     Dosage: unknown number of 100 mg tablets
     Route: 065
     Dates: start: 20120829
  2. MIRTAZAPINE [Suspect]
     Dosage: 45 mg, UNK
     Route: 065
     Dates: start: 20120829
  3. SEROQUEL [Suspect]
     Dosage: 200 mg, UNK
     Dates: start: 20120829
  4. DULOXETINE [Suspect]
     Dosage: 180 mg, UNK
     Dates: start: 20120829

REACTIONS (3)
  - Overdose [Recovered/Resolved]
  - Fatigue [Recovered/Resolved]
  - Somnolence [Recovered/Resolved]
